FAERS Safety Report 10729391 (Version 6)
Quarter: 2015Q2

REPORT INFORMATION
  Report Type: Spontaneous
  Country: CA (occurrence: CA)
  Receive Date: 20150122
  Receipt Date: 20150501
  Transmission Date: 20150821
  Serious: Yes (Other)
  Sender: FDA-Public Use
  Company Number: PHHY2014CA145966

PATIENT
  Age: 62 Year
  Sex: Female

DRUGS (6)
  1. METOPROLOL [Suspect]
     Active Substance: METOPROLOL
     Indication: HYPERTENSION
     Dosage: UNK UKN, UNK
     Route: 048
     Dates: start: 2014
  2. CARDURA [Suspect]
     Active Substance: DOXAZOSIN MESYLATE
     Indication: PRODUCT USED FOR UNKNOWN INDICATION
     Dosage: UNK UKN, UNK
     Route: 065
  3. MENVEO [Suspect]
     Active Substance: NEISSERIA MENINGITIDIS GROUP A CAPSULAR OLIGOSACCHARIDE DIPHTHERIA CRM197 PROTEIN CONJUGATE ANTIGEN\NEISSERIA MENINGITIDIS GROUP C CAPSULAR OLIGOSACCHARIDE DIPHTHERIA CRM197 PROTEIN CONJUGATE ANTIGEN\NEISSERIA MENINGITIDIS GROUP W-135 CAPSULAR OLIGOSACCHARIDE DIPHTHERIA CRM197 PROTEIN CONJUGATE ANTI
     Indication: IMMUNISATION
     Dosage: 1 DF
     Route: 065
     Dates: start: 20140506, end: 20140506
  4. METOPROLOL [Suspect]
     Active Substance: METOPROLOL
     Dosage: 175 MG, BID
     Route: 048
     Dates: start: 20150105
  5. CARDURA [Suspect]
     Active Substance: DOXAZOSIN MESYLATE
     Dosage: 16 MG,     UNK
     Route: 065
  6. APO-HYDRALAZINE [Suspect]
     Active Substance: HYDRALAZINE HYDROCHLORIDE
     Indication: PRODUCT USED FOR UNKNOWN INDICATION
     Route: 065

REACTIONS (15)
  - Productive cough [Unknown]
  - Hypertension [Unknown]
  - Fatigue [Recovered/Resolved]
  - Respiratory tract infection [Unknown]
  - Cough [Unknown]
  - Headache [Unknown]
  - Road traffic accident [Unknown]
  - Sinusitis [Recovered/Resolved]
  - Weight increased [Unknown]
  - Increased bronchial secretion [Unknown]
  - Body temperature increased [Recovered/Resolved]
  - Bronchitis [Unknown]
  - Sinus headache [Unknown]
  - Sputum discoloured [Unknown]
  - Dysphonia [Unknown]

NARRATIVE: CASE EVENT DATE: 201411
